FAERS Safety Report 14128505 (Version 1)
Quarter: 2017Q4

REPORT INFORMATION
  Report Type: Spontaneous
  Country: GB (occurrence: GB)
  Receive Date: 20171026
  Receipt Date: 20171026
  Transmission Date: 20180321
  Serious: Yes (Other)
  Sender: FDA-Public Use
  Company Number: GB-TEVA-817980ACC

PATIENT
  Age: 45 Year
  Sex: Female
  Weight: 57 kg

DRUGS (5)
  1. AZATHIOPRINE. [Concomitant]
     Active Substance: AZATHIOPRINE
  2. LEVOTHYROXINE SODIUM. [Concomitant]
     Active Substance: LEVOTHYROXINE SODIUM
  3. AMOXICILLIN. [Suspect]
     Active Substance: AMOXICILLIN
     Indication: LOWER RESPIRATORY TRACT INFECTION
     Route: 048
     Dates: start: 20170927, end: 20171001
  4. ALLOPURINOL. [Concomitant]
     Active Substance: ALLOPURINOL
  5. SULFASALAZINE. [Concomitant]
     Active Substance: SULFASALAZINE

REACTIONS (5)
  - Swelling face [Recovering/Resolving]
  - Eye swelling [Recovering/Resolving]
  - Ocular discomfort [Recovering/Resolving]
  - Eye pain [Recovering/Resolving]
  - Headache [Recovering/Resolving]

NARRATIVE: CASE EVENT DATE: 20170929
